FAERS Safety Report 4712298-0 (Version None)
Quarter: 2005Q3

REPORT INFORMATION
  Report Type: 
  Country: None (occurrence: None)
  Receive Date: 20050712
  Receipt Date: 20050627
  Transmission Date: 20060218
  Serious: Yes (Other)
  Sender: FDA-Public Use
  Company Number: B0386060A

PATIENT
  Age: 51 Year
  Sex: Female

DRUGS (3)
  1. DARAPRIM [Suspect]
     Indication: TOXOPLASMOSIS
     Dosage: 50 MG / PER DAY /
  2. SULPHAFURAZOLE [Concomitant]
  3. PREDNISONE [Concomitant]

REACTIONS (8)
  - BASOPHIL PERCENTAGE INCREASED [None]
  - CHORIORETINITIS [None]
  - CHRONIC MYELOID LEUKAEMIA [None]
  - EOSINOPHIL PERCENTAGE DECREASED [None]
  - MONOCYTE PERCENTAGE DECREASED [None]
  - PLATELET COUNT INCREASED [None]
  - SPLENOMEGALY [None]
  - TOXOPLASMOSIS [None]
